FAERS Safety Report 5938332-8 (Version None)
Quarter: 2008Q4

REPORT INFORMATION
  Report Type: 
  Country: None (occurrence: None)
  Receive Date: 20081103
  Receipt Date: 20081024
  Transmission Date: 20090506
  Serious: Yes (Other)
  Sender: FDA-Public Use
  Company Number: FR-JNJFOC-20081003000

PATIENT
  Sex: Female
  Weight: 54 kg

DRUGS (1)
  1. ORTHO EVRA [Suspect]
     Indication: CONTRACEPTION
     Route: 062

REACTIONS (5)
  - APPLICATION SITE DISCOLOURATION [None]
  - APPLICATION SITE RASH [None]
  - BURNING SENSATION [None]
  - PRURITUS [None]
  - SKIN IRRITATION [None]
